FAERS Safety Report 8521541-1 (Version None)
Quarter: 2012Q3

REPORT INFORMATION
  Report Type: 
  Country: None (occurrence: None)
  Receive Date: 20120719
  Receipt Date: 20120716
  Transmission Date: 20120928
  Serious: Yes (Other)
  Sender: FDA-Public Use
  Company Number: PHEH2012US011671

PATIENT
  Sex: Female

DRUGS (3)
  1. GLEEVEC [Suspect]
     Indication: CHRONIC MYELOID LEUKAEMIA
     Dosage: 400 MG, QD
     Route: 048
  2. GLEEVEC [Interacting]
     Dosage: 400 MG, DAILY
     Route: 048
  3. PAXIL [Interacting]
     Dosage: 20 MG, DAILY
     Route: 048
     Dates: start: 20120606, end: 20120609

REACTIONS (4)
  - DEPRESSION [None]
  - DRUG INTERACTION [None]
  - APHASIA [None]
  - HALLUCINATION [None]
